FAERS Safety Report 21836828 (Version 4)
Quarter: 2024Q1

REPORT INFORMATION
  Report Type: Report from Study
  Country: US (occurrence: US)
  Receive Date: 20230109
  Receipt Date: 20240315
  Transmission Date: 20240410
  Serious: Yes (Hospitalization)
  Sender: FDA-Public Use
  Company Number: US-ARGENX-2022-ARGX-US000916

PATIENT

DRUGS (3)
  1. VYVGART [Suspect]
     Active Substance: EFGARTIGIMOD ALFA-FCAB
     Indication: Myasthenia gravis
     Dosage: 10 MG/KG, Q2WEEKS
     Route: 042
     Dates: start: 20220303
  2. PREDNISONE [Suspect]
     Active Substance: PREDNISONE
     Indication: Product used for unknown indication
     Dosage: 35 MG
     Route: 065
  3. PREDNISONE [Suspect]
     Active Substance: PREDNISONE
     Dosage: 27 MG

REACTIONS (8)
  - Myasthenia gravis [Unknown]
  - Infected bite [Unknown]
  - Cellulitis [Recovered/Resolved]
  - Condition aggravated [Unknown]
  - Dysarthria [Unknown]
  - Oedema peripheral [Unknown]
  - Spider naevus [Recovering/Resolving]
  - Dysphagia [Recovered/Resolved]

NARRATIVE: CASE EVENT DATE: 20231201
